FAERS Safety Report 19448940 (Version 2)
Quarter: 2021Q2

REPORT INFORMATION
  Report Type: Spontaneous
  Country: FR (occurrence: FR)
  Receive Date: 20210622
  Receipt Date: 20210630
  Transmission Date: 20210717
  Serious: Yes (Hospitalization, Other)
  Sender: FDA-Public Use
  Company Number: FR-INDIVIOR EUROPE LIMITED-INDV-130079-2021

PATIENT

DRUGS (2)
  1. BUPRENORPHINE. [Suspect]
     Active Substance: BUPRENORPHINE
     Indication: PRODUCT USED FOR UNKNOWN INDICATION
     Dosage: 12 MILLIGRAM EVERY 24 HOUR
     Route: 042
     Dates: start: 2018
  2. NICOTINE. [Suspect]
     Active Substance: NICOTINE
     Indication: PRODUCT USED FOR UNKNOWN INDICATION
     Dosage: 16 PA
     Route: 065

REACTIONS (15)
  - Pulmonary embolism [Recovering/Resolving]
  - Endocarditis [Recovering/Resolving]
  - Pneumonia [Unknown]
  - Abscess limb [Recovered/Resolved]
  - Septic shock [Recovered/Resolved]
  - Splenic infarction [Recovering/Resolving]
  - Pneumonia [Recovering/Resolving]
  - Renal infarct [Recovering/Resolving]
  - Drug abuse [Not Recovered/Not Resolved]
  - Anaemia [Unknown]
  - Cardiomyopathy [Unknown]
  - Lung abscess [Recovering/Resolving]
  - Bursitis [Recovering/Resolving]
  - Thrombocytopenia [Unknown]
  - Intentional product use issue [Unknown]

NARRATIVE: CASE EVENT DATE: 2018
